FAERS Safety Report 25389321 (Version 2)
Quarter: 2025Q2

REPORT INFORMATION
  Report Type: Spontaneous
  Country: US (occurrence: US)
  Receive Date: 20250603
  Receipt Date: 20250606
  Transmission Date: 20250717
  Serious: No
  Sender: AMGEN
  Company Number: US-AMGEN-USASP2025107870

PATIENT
  Sex: Male

DRUGS (7)
  1. OTEZLA [Suspect]
     Active Substance: APREMILAST
     Indication: Psoriasis
     Dosage: 30 MILLIGRAM, BID
     Route: 048
     Dates: start: 20230301
  2. ALCLOMETASONE [Concomitant]
     Active Substance: ALCLOMETASONE
  3. ALFUZOSIN [Concomitant]
     Active Substance: ALFUZOSIN
  4. Betameth dipropionate [Concomitant]
  5. CLOBETASOL [Concomitant]
     Active Substance: CLOBETASOL
  6. FLUOCINOLONE ACETONIDE [Concomitant]
     Active Substance: FLUOCINOLONE ACETONIDE
  7. KETOCONAZOLE [Concomitant]
     Active Substance: KETOCONAZOLE

REACTIONS (1)
  - Gastrointestinal disorder [Unknown]
